FAERS Safety Report 15673832 (Version 7)
Quarter: 2020Q3

REPORT INFORMATION
  Report Type: Spontaneous
  Country: US (occurrence: US)
  Receive Date: 20181129
  Receipt Date: 20200930
  Transmission Date: 20201102
  Serious: Yes (Other)
  Sender: FDA-Public Use
  Company Number: US-PFIZER INC-2018115017

PATIENT
  Age: 75 Year
  Sex: Female
  Weight: 105 kg

DRUGS (39)
  1. DOCUSATE SODIUM. [Concomitant]
     Active Substance: DOCUSATE SODIUM
     Dosage: 100 MG, UNK
     Dates: start: 20170623
  2. TRAMADOL. [Concomitant]
     Active Substance: TRAMADOL
     Indication: OSTEOARTHRITIS
     Dosage: 100 MG
     Route: 048
  3. GABAPENTIN. [Concomitant]
     Active Substance: GABAPENTIN
     Dosage: 100 MG, 3X/DAY
     Route: 048
  4. MUPIROCIN. [Concomitant]
     Active Substance: MUPIROCIN
     Dosage: 2 %, 2X/DAY
     Route: 061
  5. LOSARTAN POTASSIUM. [Concomitant]
     Active Substance: LOSARTAN POTASSIUM
     Indication: ESSENTIAL HYPERTENSION
     Dosage: 100 MG, 1X/DAY
  6. PENNSAID [Concomitant]
     Active Substance: DICLOFENAC SODIUM
     Dosage: UNK
  7. VITAMIN C [Concomitant]
     Active Substance: ASCORBIC ACID
     Dosage: 1000 MG, UNK
  8. NYSTATIN. [Concomitant]
     Active Substance: NYSTATIN
     Dosage: UNK UNK, 2X/DAY(APPLY TOPICALLY TO RIGHT ARMPIT TWICE DAILY UNTIL CLEAR)
     Route: 061
  9. CEPACOL SORE THROAT [BENZOCAINE;MENTHOL] [Concomitant]
     Indication: OROPHARYNGEAL PAIN
     Dosage: UNK, AS NEEDED (DISSOLVE 1 LOZENGE BY MOUTH EVERY 4 HOURS AS NEEDED)
     Route: 048
  10. PREMARIN [Concomitant]
     Active Substance: ESTROGENS, CONJUGATED
     Dosage: UNK
  11. 3M CAVILON ANTIFUNGAL [Concomitant]
     Active Substance: MICONAZOLE NITRATE
     Dosage: 92 G, 3X/DAY
  12. SF 5000 PLUS [Concomitant]
     Active Substance: SODIUM FLUORIDE
     Dosage: UNK, 2X/DAY
  13. LYRICA [Suspect]
     Active Substance: PREGABALIN
     Indication: NEURALGIA
  14. CITALOPRAM HYDROBROMIDE. [Concomitant]
     Active Substance: CITALOPRAM HYDROBROMIDE
     Indication: MAJOR DEPRESSION
     Dosage: UNK, 1X/DAY (20)
     Dates: start: 20170623
  15. PAROXETINE HCL [Concomitant]
     Active Substance: PAROXETINE HYDROCHLORIDE
     Indication: DEPRESSION
     Dosage: 20 MG, 1X/DAY
     Route: 048
  16. ANTI?DIARRHEAL [Concomitant]
     Active Substance: LOPERAMIDE HYDROCHLORIDE
     Dosage: 2 MG
     Route: 048
  17. CEPACOL SORE THROAT [BENZOCAINE;MENTHOL] [Concomitant]
     Indication: COUGH
  18. FOSAMAX [Concomitant]
     Active Substance: ALENDRONATE SODIUM
     Indication: OSTEOPOROSIS
     Dosage: 70 MG, WEEKLY
     Route: 048
  19. VITAMIN D3 [Concomitant]
     Active Substance: CHOLECALCIFEROL
     Dosage: 1000 IU, UNK
  20. ACETAMINOPHEN;HYDROCODONE [Concomitant]
     Active Substance: ACETAMINOPHEN\HYDROCODONE
     Dosage: UNK, 3X/DAY(7.5?325MG) BY MOUTH 3 TIMES A DAY)
     Route: 048
  21. BISACODYL. [Concomitant]
     Active Substance: BISACODYL
     Indication: CONSTIPATION
     Dosage: 5 MG, DAILY(ONCE DAILY)
     Route: 048
  22. TYLENOL [Concomitant]
     Active Substance: ACETAMINOPHEN
     Dosage: 325 MG, UNK (EVERY 4 TO 6 HOURS)
  23. POLYETHYLENE GLYCOL [Concomitant]
     Active Substance: POLYETHYLENE GLYCOLS
     Dosage: UNK UNK, 1X/DAY(DISSOLVE 8.SGM IN BOZ OF LIQUID AND GIVE BY MOUTH ONCE EVERY DAY)
     Route: 048
  24. SENNA TABS [Concomitant]
     Active Substance: SENNOSIDES A AND B
     Indication: ABDOMINAL DISCOMFORT
     Dosage: 8.6 MG, 2X/DAY
     Route: 048
  25. CALCIUM CARBONATE. [Concomitant]
     Active Substance: CALCIUM CARBONATE
     Dosage: 500 MG
     Route: 048
  26. COQ 10 [Concomitant]
     Active Substance: UBIDECARENONE
     Dosage: UNK
     Dates: start: 20170623
  27. LAMOTRIGINE. [Concomitant]
     Active Substance: LAMOTRIGINE
     Dosage: 100 MG, 2X/DAY
  28. PROTONIX [Concomitant]
     Active Substance: PANTOPRAZOLE SODIUM
     Dosage: 20 MG, 1X/DAY (EVERY MORNING)
  29. QUETIAPINE FUMARATE. [Concomitant]
     Active Substance: QUETIAPINE FUMARATE
     Dosage: 0.5 DF, 1X/DAY (EVERY BEDTIME)
  30. TRAZODONE HYDROCHLORIDE. [Concomitant]
     Active Substance: TRAZODONE HYDROCHLORIDE
     Indication: BURSITIS
     Dosage: 100 MG, UNK (AS DIRECTED)
  31. FLEET GLYCERINE [Concomitant]
     Dosage: (1 SUPPOSITORY)
     Route: 054
  32. LYRICA [Suspect]
     Active Substance: PREGABALIN
     Indication: FIBROMYALGIA
     Dosage: 50 MG, 3X/DAY
     Route: 048
     Dates: start: 20170623
  33. ADULT ASPIRIN EC LOW STRENGTH [Concomitant]
     Dosage: UNK, 1X/DAY
     Dates: start: 20170623
  34. BUPROPION HCL ER [Concomitant]
     Active Substance: BUPROPION HYDROCHLORIDE
     Dosage: UNK, 2X/DAY (150)
     Dates: start: 20170623
  35. IBUPROFEN. [Concomitant]
     Active Substance: IBUPROFEN
     Dosage: 200 MG, UNK (EVERY 4 TO 6 HOURS)
  36. NAMENDA [Concomitant]
     Active Substance: MEMANTINE HYDROCHLORIDE
     Dosage: 10 MG, 2X/DAY
  37. TRAMADOL HCL [Concomitant]
     Active Substance: TRAMADOL HYDROCHLORIDE
     Dosage: UNK, 1X/DAY
  38. OSELTAMIVIR [Concomitant]
     Active Substance: OSELTAMIVIR
     Dosage: 75 MG, 2X/DAY(GIVE 1 CAPSULE BY MOUTH TWICE DAILY FOR5 DAYS WITHIN48 HRS OF ONSET)
     Route: 048
  39. CEPACOL SORE THROAT [BENZOCAINE;MENTHOL] [Concomitant]
     Indication: DRY MOUTH

REACTIONS (14)
  - Chronic kidney disease [Unknown]
  - Intervertebral disc degeneration [Unknown]
  - Dysaesthesia [Unknown]
  - Gastrooesophageal reflux disease [Unknown]
  - Migraine [Unknown]
  - Hypoaesthesia [Unknown]
  - Pain [Unknown]
  - Impaired fasting glucose [Unknown]
  - Atrophic vulvovaginitis [Unknown]
  - Neuritis [Unknown]
  - Sleep apnoea syndrome [Unknown]
  - Dementia [Not Recovered/Not Resolved]
  - Arthralgia [Unknown]
  - Hyperlipidaemia [Unknown]
